FAERS Safety Report 5808300-5 (Version None)
Quarter: 2008Q3

REPORT INFORMATION
  Report Type: 
  Country: None (occurrence: None)
  Receive Date: 20080709
  Receipt Date: 20080624
  Transmission Date: 20090109
  Serious: No
  Sender: FDA-Public Use
  Company Number: SPI200800296

PATIENT
  Age: 34 Year
  Sex: Female
  Weight: 59 kg

DRUGS (4)
  1. AMITIZA(LUBIPROSTONE) CAPSULES, 24MCG [Suspect]
     Indication: CONSTIPATION
     Dosage: 24 MCG, BID, ORAL
     Route: 048
     Dates: start: 20080324, end: 20080414
  2. LEXAPRO [Concomitant]
  3. YASMIN [Concomitant]
  4. IBUPROFEN [Concomitant]

REACTIONS (7)
  - ANXIETY [None]
  - BODY TEMPERATURE INCREASED [None]
  - CONDITION AGGRAVATED [None]
  - DYSPNOEA [None]
  - FLUSHING [None]
  - HOT FLUSH [None]
  - PANIC REACTION [None]
